FAERS Safety Report 8714067 (Version 3)
Quarter: 2013Q2

REPORT INFORMATION
  Report Type: Spontaneous
  Country: GB (occurrence: GB)
  Receive Date: 20120808
  Receipt Date: 20130601
  Transmission Date: 20140414
  Serious: Yes (Death, Life-Threatening, Other)
  Sender: FDA-Public Use
  Company Number: GB-ROCHE-1095053

PATIENT
  Sex: Male
  Weight: 73 kg

DRUGS (5)
  1. MABTHERA [Suspect]
     Indication: B-CELL LYMPHOMA
     Route: 042
     Dates: start: 20120330, end: 20120706
  2. CYCLOPHOSPHAMIDE [Concomitant]
     Indication: NON-HODGKIN^S LYMPHOMA
     Route: 042
     Dates: start: 20120302, end: 20120706
  3. DOXORUBICIN [Concomitant]
     Indication: NON-HODGKIN^S LYMPHOMA
     Route: 042
  4. PREDNISOLON [Concomitant]
     Indication: NON-HODGKIN^S LYMPHOMA
     Route: 048
  5. VINCRISTINE [Concomitant]
     Indication: NON-HODGKIN^S LYMPHOMA
     Route: 042

REACTIONS (4)
  - JC virus infection [Fatal]
  - Convulsion [Unknown]
  - Coma [Unknown]
  - Confusional state [Unknown]
